FAERS Safety Report 8089911-6 (Version None)
Quarter: 2012Q1

REPORT INFORMATION
  Report Type: 
  Country: None (occurrence: None)
  Receive Date: 20120129
  Receipt Date: 20111021
  Transmission Date: 20120608
  Serious: No
  Sender: FDA-Public Use
  Company Number: US-ABBOTT-11P-163-0867347-00

PATIENT
  Age: 51 Year
  Sex: Female

DRUGS (5)
  1. PRILOSEC [Concomitant]
     Indication: GASTROOESOPHAGEAL REFLUX DISEASE
     Dosage: DAILY
  2. HUMIRA [Suspect]
     Indication: RHEUMATOID ARTHRITIS
     Dates: start: 20110201
  3. CLARITIN [Concomitant]
     Indication: HYPERSENSITIVITY
     Dosage: DAILY
  4. HYDROCODONE BITARTRATE [Concomitant]
     Indication: PAIN
     Dosage: DAILY
  5. SYNTHROID [Concomitant]
     Indication: HYPOTHYROIDISM
     Dosage: DAILY

REACTIONS (3)
  - NAUSEA [None]
  - NASOPHARYNGITIS [None]
  - DYSPHONIA [None]
